FAERS Safety Report 23187911 (Version 3)
Quarter: 2025Q1

REPORT INFORMATION
  Report Type: Spontaneous
  Country: JP (occurrence: JP)
  Receive Date: 20231115
  Receipt Date: 20250214
  Transmission Date: 20250408
  Serious: Yes (Hospitalization)
  Sender: TAKEDA
  Company Number: JP-TAKEDA-2023TUS106453

PATIENT
  Age: 75 Year
  Sex: Male

DRUGS (7)
  1. FOSRENOL [Suspect]
     Active Substance: LANTHANUM CARBONATE
     Indication: Hyperphosphataemia
     Dosage: 250 MILLIGRAM, TID
     Dates: start: 202310
  2. FOSRENOL [Suspect]
     Active Substance: LANTHANUM CARBONATE
     Indication: Chronic kidney disease
  3. CALCIUM [Suspect]
     Active Substance: CALCIUM
     Indication: Product used for unknown indication
     Dates: start: 20231030, end: 20231030
  4. PECTIN [Suspect]
     Active Substance: PECTIN
     Indication: Product used for unknown indication
     Dosage: UNK, UNK, Q2WEEKS
     Dates: start: 20231015
  5. CALTAN [Concomitant]
     Active Substance: CALCIUM CARBONATE
     Indication: Hyperphosphataemia
  6. LANSOPRAZOLE [Concomitant]
     Active Substance: LANSOPRAZOLE
  7. LOKELMA [Concomitant]
     Active Substance: SODIUM ZIRCONIUM CYCLOSILICATE

REACTIONS (3)
  - Bezoar [Recovering/Resolving]
  - Product residue present [Unknown]
  - Incorrect route of product administration [Unknown]
